FAERS Safety Report 6613465-1 (Version None)
Quarter: 2010Q1

REPORT INFORMATION
  Report Type: 
  Country: None (occurrence: None)
  Receive Date: 20100304
  Receipt Date: 20100302
  Transmission Date: 20100710
  Serious: Yes (Hospitalization)
  Sender: FDA-Public Use
  Company Number: AU-B.I. PHARMACEUTICALS,INC./RIDGEFIELD-2010-AU-00151AU

PATIENT
  Age: 80 Year

DRUGS (1)
  1. ASASANTIN [Suspect]

REACTIONS (1)
  - CEREBROVASCULAR ACCIDENT [None]
